FAERS Safety Report 21080807 (Version 1)
Quarter: 2022Q3

REPORT INFORMATION
  Report Type: Spontaneous
  Country: US (occurrence: US)
  Receive Date: 20220714
  Receipt Date: 20220714
  Transmission Date: 20221027
  Serious: No
  Sender: FDA-Public Use
  Company Number: US-RECKITT BENCKISER HEALTHCARE INT LIMITED-RB-98293-2021

PATIENT
  Age: 68 Year
  Sex: Female

DRUGS (5)
  1. MUCINEX DM [Suspect]
     Active Substance: DEXTROMETHORPHAN HYDROBROMIDE\GUAIFENESIN
     Indication: Cough
     Dosage: 600 MILLIGRAM, QD
     Route: 048
     Dates: start: 20211017
  2. MUCINEX DM [Suspect]
     Active Substance: DEXTROMETHORPHAN HYDROBROMIDE\GUAIFENESIN
     Indication: Respiratory tract congestion
  3. MUCINEX [Suspect]
     Active Substance: GUAIFENESIN
     Indication: Cough
     Dosage: 600 MILLIGRAM, QD
     Route: 048
     Dates: start: 20211007, end: 20211015
  4. MUCINEX [Suspect]
     Active Substance: GUAIFENESIN
     Indication: Respiratory tract congestion
  5. SYNTHROID [Concomitant]
     Active Substance: LEVOTHYROXINE SODIUM
     Indication: Thyroid disorder
     Dosage: UNK
     Route: 065

REACTIONS (1)
  - Expired product administered [Unknown]
